FAERS Safety Report 13844772 (Version 8)
Quarter: 2021Q1

REPORT INFORMATION
  Report Type: Spontaneous
  Country: US (occurrence: US)
  Receive Date: 20170808
  Receipt Date: 20210126
  Transmission Date: 20210419
  Serious: No
  Sender: FDA-Public Use
  Company Number: US-PFIZER INC-2017339611

PATIENT
  Age: 78 Year
  Sex: Male
  Weight: 88 kg

DRUGS (5)
  1. IBRANCE [Suspect]
     Active Substance: PALBOCICLIB
     Dosage: 125 MG, CYCLIC (D1?21 Q28 DAYS)
     Route: 048
     Dates: start: 201707, end: 201707
  2. IBRANCE [Suspect]
     Active Substance: PALBOCICLIB
     Indication: BREAST CANCER METASTATIC
     Dosage: 125 MG, CYCLIC (D1?21 Q28 DAYS)
     Route: 048
     Dates: start: 20170724, end: 201707
  3. IBRANCE [Suspect]
     Active Substance: PALBOCICLIB
     Dosage: 100 MG, CYCLIC (DAY 1?21 Q 28 DAYS)
     Route: 048
     Dates: start: 201707
  4. IBRANCE [Suspect]
     Active Substance: PALBOCICLIB
     Dosage: 125 MG, CYCLIC (DAY 1?21 Q28DAYS)
     Route: 048
     Dates: start: 201707, end: 201707
  5. IBRANCE [Suspect]
     Active Substance: PALBOCICLIB
     Dosage: 100 MG, CYCLIC (DAY 1?21 Q 28 DAYS)
     Route: 048
     Dates: start: 20170724

REACTIONS (10)
  - Asthenia [Unknown]
  - White blood cell count decreased [Unknown]
  - Diarrhoea [Unknown]
  - Nausea [Not Recovered/Not Resolved]
  - Somnolence [Unknown]
  - Hypersomnia [Unknown]
  - Fatigue [Unknown]
  - Retching [Unknown]
  - Haemoglobin decreased [Recovered/Resolved]
  - Product dose omission issue [Unknown]

NARRATIVE: CASE EVENT DATE: 2017
